FAERS Safety Report 23492766 (Version 2)
Quarter: 2024Q1

REPORT INFORMATION
  Report Type: Spontaneous
  Country: US (occurrence: US)
  Receive Date: 20240207
  Receipt Date: 20240218
  Transmission Date: 20240410
  Serious: No
  Sender: FDA-Public Use
  Company Number: US-JNJFOC-20240130858

PATIENT
  Age: 57 Year
  Sex: Female
  Weight: 136.2 kg

DRUGS (1)
  1. TREMFYA [Suspect]
     Active Substance: GUSELKUMAB
     Indication: Psoriatic arthropathy
     Route: 065

REACTIONS (2)
  - Injection site discharge [Unknown]
  - Product use complaint [Unknown]

NARRATIVE: CASE EVENT DATE: 20240111
